FAERS Safety Report 6382003-3 (Version None)
Quarter: 2009Q3

REPORT INFORMATION
  Report Type: 
  Country: None (occurrence: None)
  Receive Date: 20090930
  Receipt Date: 20090921
  Transmission Date: 20100115
  Serious: Yes (Hospitalization)
  Sender: FDA-Public Use
  Company Number: US-ASTRAZENECA-2009SE14269

PATIENT
  Age: 38 Year
  Sex: Female

DRUGS (13)
  1. ZOMIG [Suspect]
     Indication: MIGRAINE
     Dates: start: 19990101
  2. LEXAPRO [Suspect]
  3. AMITRIPTYLINE [Suspect]
  4. IMITREX [Concomitant]
  5. SUBOXONE [Concomitant]
  6. POTASSIUM CHLORIDE [Concomitant]
  7. TESTOSTERONE [Concomitant]
  8. PROGESTERONE [Concomitant]
  9. ESTROGEN PATCH [Concomitant]
  10. LORAZEPAM [Concomitant]
  11. GABAPINTIN [Concomitant]
  12. HYDROCORTISONE [Concomitant]
  13. VIT B12 INJECTION [Concomitant]

REACTIONS (8)
  - ACCIDENTAL OVERDOSE [None]
  - DELIRIUM [None]
  - GASTRIC BYPASS [None]
  - MIGRAINE [None]
  - PYREXIA [None]
  - SEROTONIN SYNDROME [None]
  - THYROID DISORDER [None]
  - TREMOR [None]
